FAERS Safety Report 7306640-4 (Version None)
Quarter: 2011Q1

REPORT INFORMATION
  Report Type: 
  Country: None (occurrence: None)
  Receive Date: 20110222
  Receipt Date: 20110209
  Transmission Date: 20110831
  Serious: Yes (Hospitalization)
  Sender: FDA-Public Use
  Company Number: AT-TEVA-267774ISR

PATIENT
  Age: 23 Year
  Sex: Female
  Weight: 53 kg

DRUGS (7)
  1. VENLAFAXINE HYDROCHLORIDE [Suspect]
     Route: 048
     Dates: start: 20101124
  2. LORAZEPAM [Concomitant]
     Route: 048
     Dates: start: 20101208, end: 20101221
  3. QUETIAPINE [Suspect]
     Route: 048
     Dates: start: 20101123
  4. LORAZEPAM [Concomitant]
     Route: 048
     Dates: start: 20101128, end: 20101207
  5. MIRTAZAPINE [Suspect]
     Route: 048
     Dates: start: 20101206, end: 20101208
  6. BISOPROLOL FUMARATE [Concomitant]
     Route: 048
     Dates: start: 20101130
  7. LAMOTRIGINE [Concomitant]
     Route: 048

REACTIONS (1)
  - RESTLESS LEGS SYNDROME [None]
